FAERS Safety Report 26113234 (Version 1)
Quarter: 2025Q4

REPORT INFORMATION
  Report Type: Spontaneous
  Country: GB (occurrence: GB)
  Receive Date: 20251202
  Receipt Date: 20251202
  Transmission Date: 20260117
  Serious: Yes (Life-Threatening, Hospitalization, Other)
  Sender: GLAXOSMITHKLINE
  Company Number: GB-GSK-GB2025EME144415

PATIENT
  Age: 77 Year
  Sex: Female

DRUGS (1)
  1. DOSTARLIMAB [Suspect]
     Active Substance: DOSTARLIMAB
     Indication: Colon cancer metastatic
     Dosage: 500 MG, 1 CYCLE

REACTIONS (5)
  - Myocarditis [Recovered/Resolved]
  - Myasthenia gravis [Recovered/Resolved]
  - Myositis [Recovered/Resolved with Sequelae]
  - Myopathy [Unknown]
  - Off label use [Unknown]

NARRATIVE: CASE EVENT DATE: 20240723
